FAERS Safety Report 4316139-5 (Version None)
Quarter: 2004Q1

REPORT INFORMATION
  Report Type: 
  Country: None (occurrence: None)
  Receive Date: 20040312
  Receipt Date: 20040309
  Transmission Date: 20041129
  Serious: Yes (Hospitalization)
  Sender: FDA-Public Use
  Company Number: ES-BRISTOL-MYERS SQUIBB COMPANY-12528030

PATIENT
  Age: 79 Year
  Sex: Female

DRUGS (2)
  1. SINEMET [Suspect]
     Dosage: DOSAGE: 25MG/100MG, 3 FIXED DOSE
     Route: 048
     Dates: start: 20030519, end: 20030603
  2. SEROPRAM [Suspect]
     Route: 048
     Dates: start: 20030519, end: 20030603

REACTIONS (3)
  - ABNORMAL BEHAVIOUR [None]
  - MANIA [None]
  - PERSONALITY DISORDER [None]
